FAERS Safety Report 9134946 (Version 1)
Quarter: 2013Q1

REPORT INFORMATION
  Report Type: Other
  Country: US (occurrence: US)
  Receive Date: 20130304
  Receipt Date: 20130304
  Transmission Date: 20140127
  Serious: Yes (Hospitalization)
  Sender: FDA-Public Use
  Company Number: US-ENDO PHARMACEUTICALS INC.-ENDC20090048

PATIENT
  Age: 81 Year
  Sex: Male
  Weight: 63.56 kg

DRUGS (11)
  1. ENDOCET [Suspect]
     Indication: PAIN
     Dosage: 5/325 MG
     Route: 048
     Dates: start: 20090728, end: 20090923
  2. MS CONTIN [Suspect]
     Indication: PAIN
     Dosage: 15 MG
     Route: 048
     Dates: start: 20090825
  3. PREDNISONE [Suspect]
     Indication: PROSTATE CANCER
     Dosage: 5 MG
     Route: 048
     Dates: start: 20090811, end: 200910
  4. PREDNISONE [Suspect]
     Dosage: 5 MG
     Route: 048
     Dates: start: 20091006
  5. SUNITINIB MALATE [Suspect]
     Indication: PROSTATE CANCER
     Dosage: 37.5 MG
     Route: 048
     Dates: start: 20090818, end: 20090923
  6. OMEPRAZOLE [Concomitant]
     Indication: GASTROOESOPHAGEAL REFLUX DISEASE
     Route: 048
     Dates: start: 20090609
  7. IRON [Concomitant]
     Indication: ANAEMIA
     Route: 048
     Dates: start: 20090505
  8. ARICEPT [Concomitant]
     Indication: DEMENTIA
     Route: 048
     Dates: start: 20081030
  9. NAMENDA [Concomitant]
     Indication: DEMENTIA
     Route: 048
     Dates: start: 20081030
  10. ZOMETA [Concomitant]
     Indication: METASTASES TO BONE
     Dates: start: 20090127
  11. ZOLADEX [Concomitant]
     Indication: PROSTATE CANCER
     Route: 058
     Dates: start: 20090127

REACTIONS (7)
  - Mental status changes [Recovered/Resolved]
  - Confusional state [Recovered/Resolved]
  - Somnolence [None]
  - Aphasia [None]
  - Movement disorder [None]
  - Pyrexia [None]
  - Overdose [None]
